FAERS Safety Report 15678005 (Version 2)
Quarter: 2018Q4

REPORT INFORMATION
  Report Type: Spontaneous
  Country: IL (occurrence: IL)
  Receive Date: 20181130
  Receipt Date: 20181205
  Transmission Date: 20190205
  Serious: No
  Sender: FDA-Public Use
  Company Number: IL-ABBVIE-18K-082-2571431-00

PATIENT
  Age: 61 Year
  Sex: Female

DRUGS (1)
  1. VENCLEXTA [Suspect]
     Active Substance: VENETOCLAX
     Indication: ACUTE MYELOID LEUKAEMIA
     Route: 048

REACTIONS (1)
  - Off label use [Unknown]
